FAERS Safety Report 6147224-3 (Version None)
Quarter: 2009Q2

REPORT INFORMATION
  Report Type: 
  Country: None (occurrence: None)
  Receive Date: 20090408
  Receipt Date: 20080215
  Transmission Date: 20091009
  Serious: Yes (Hospitalization, Other)
  Sender: FDA-Public Use
  Company Number: US-ASTRAZENECA-2006UW23351

PATIENT
  Age: 15742 Day
  Sex: Female
  Weight: 72.6 kg

DRUGS (15)
  1. SEROQUEL [Suspect]
     Route: 048
  2. ATIVAN [Concomitant]
     Dates: start: 20020501
  3. DEPAKOTE [Concomitant]
     Dates: start: 20020501
  4. COGENTIN [Concomitant]
     Dates: start: 20020501
  5. SERZONE [Concomitant]
     Dates: start: 20020501
  6. EFFEXOR [Concomitant]
     Dates: start: 20020101
  7. SYNTHROID [Concomitant]
     Dates: start: 20020101
  8. TRILEPTAL [Concomitant]
     Dates: start: 20030701
  9. CELEXA [Concomitant]
     Dates: start: 20030101
  10. GEODON [Concomitant]
  11. ZYPREXA [Concomitant]
  12. ABILIFY [Concomitant]
  13. LEVOXYL [Concomitant]
  14. ADVAIR HFA [Concomitant]
  15. COMBIVENT [Concomitant]

REACTIONS (21)
  - ANAEMIA [None]
  - ANXIETY [None]
  - ARTHRALGIA [None]
  - ASTHMA [None]
  - BLOOD ELECTROLYTES [None]
  - BLOOD OSMOLARITY ABNORMAL [None]
  - BRONCHITIS [None]
  - CHOLELITHIASIS [None]
  - CONVULSION [None]
  - DIABETES MELLITUS [None]
  - DIARRHOEA [None]
  - HYPERTENSION [None]
  - MUSCLE SPASMS [None]
  - MUSCULOSKELETAL PAIN [None]
  - NAUSEA [None]
  - PAIN IN EXTREMITY [None]
  - POLYDIPSIA PSYCHOGENIC [None]
  - RASH [None]
  - RESTLESS LEGS SYNDROME [None]
  - SLEEP APNOEA SYNDROME [None]
  - VOMITING [None]
